FAERS Safety Report 10757029 (Version 3)
Quarter: 2015Q1

REPORT INFORMATION
  Report Type: Spontaneous
  Country: BR (occurrence: BR)
  Receive Date: 20150203
  Receipt Date: 20150327
  Transmission Date: 20150721
  Serious: Yes (Other)
  Sender: FDA-Public Use
  Company Number: BR-LUNDBECK-DKLU1108317

PATIENT
  Age: 29 Year
  Sex: Female

DRUGS (4)
  1. URBANIL [Suspect]
     Active Substance: CLOBAZAM
     Indication: SEDATIVE THERAPY
  2. NEUTROFER [Concomitant]
     Active Substance: FERROUS BISGLYCINATE
     Indication: PRODUCT USED FOR UNKNOWN INDICATION
  3. TRILEPTAL [Concomitant]
     Active Substance: OXCARBAZEPINE
     Indication: PRODUCT USED FOR UNKNOWN INDICATION
  4. URBANIL [Suspect]
     Active Substance: CLOBAZAM
     Indication: EPILEPSY
     Route: 048
     Dates: start: 2001

REACTIONS (6)
  - Stress [Not Recovered/Not Resolved]
  - Epilepsy [Recovered/Resolved]
  - Drug ineffective [None]
  - Mood swings [Recovered/Resolved]
  - Somnolence [Not Recovered/Not Resolved]
  - Memory impairment [None]
